FAERS Safety Report 7528417-7 (Version None)
Quarter: 2011Q2

REPORT INFORMATION
  Report Type: 
  Country: None (occurrence: None)
  Receive Date: 20110607
  Receipt Date: 20100510
  Transmission Date: 20111010
  Serious: No
  Sender: FDA-Public Use
  Company Number: US-ASTRAZENECA-2010SE22468

PATIENT
  Sex: Female

DRUGS (2)
  1. PRILOSEC OTC [Suspect]
     Indication: HELICOBACTER INFECTION
     Route: 048
     Dates: start: 20100414
  2. PRILOSEC OTC [Suspect]
     Route: 048
     Dates: end: 20100509

REACTIONS (4)
  - MUSCULOSKELETAL STIFFNESS [None]
  - BACK PAIN [None]
  - PYREXIA [None]
  - ARTHRALGIA [None]
